FAERS Safety Report 19170585 (Version 1)
Quarter: 2021Q2

REPORT INFORMATION
  Report Type: Spontaneous
  Country: US (occurrence: US)
  Receive Date: 20210423
  Receipt Date: 20210423
  Transmission Date: 20210717
  Serious: No
  Sender: FDA-Public Use
  Company Number: US-JNJFOC-20210424103

PATIENT
  Age: 37 Year
  Sex: Male
  Weight: 80.81 kg

DRUGS (2)
  1. STELARA [Suspect]
     Active Substance: USTEKINUMAB
  2. STELARA [Suspect]
     Active Substance: USTEKINUMAB
     Indication: CROHN^S DISEASE
     Dosage: TREATMENT IS ON 08?APR?2021.
     Route: 058
     Dates: start: 201904

REACTIONS (2)
  - Abdominal pain [Unknown]
  - Product storage error [Unknown]

NARRATIVE: CASE EVENT DATE: 202104
